FAERS Safety Report 18517412 (Version 1)
Quarter: 2020Q4

REPORT INFORMATION
  Report Type: Spontaneous
  Country: US (occurrence: US)
  Receive Date: 20201118
  Receipt Date: 20201118
  Transmission Date: 20210114
  Serious: Yes (Hospitalization)
  Sender: FDA-Public Use
  Company Number: US-ELI_LILLY_AND_COMPANY-US202011007312

PATIENT
  Sex: Female

DRUGS (14)
  1. CIRCADIN [Concomitant]
     Active Substance: MELATONIN
     Indication: PRODUCT USED FOR UNKNOWN INDICATION
  2. ACTIGALL [Concomitant]
     Active Substance: URSODIOL
     Indication: PRODUCT USED FOR UNKNOWN INDICATION
     Dosage: UNK
     Dates: start: 201508, end: 20201002
  3. ULTRAM [Concomitant]
     Active Substance: TRAMADOL HYDROCHLORIDE
     Indication: PRODUCT USED FOR UNKNOWN INDICATION
  4. SODIUM CHLORIDE. [Concomitant]
     Active Substance: SODIUM CHLORIDE
     Indication: PRODUCT USED FOR UNKNOWN INDICATION
  5. ZYPREXA [Suspect]
     Active Substance: OLANZAPINE
     Indication: SCHIZOPHRENIA
     Dosage: 2.5 MG, TID
     Route: 048
     Dates: start: 20190130, end: 20201002
  6. OCALIVA [Suspect]
     Active Substance: OBETICHOLIC ACID
     Indication: PRIMARY BILIARY CHOLANGITIS
     Dosage: 5 MG, BID
     Route: 048
     Dates: start: 20200212, end: 2020
  7. NARCAN [Concomitant]
     Active Substance: NALOXONE HYDROCHLORIDE
     Indication: PRODUCT USED FOR UNKNOWN INDICATION
  8. ALBUTEROL [SALBUTAMOL] [Concomitant]
     Active Substance: ALBUTEROL
     Indication: PRODUCT USED FOR UNKNOWN INDICATION
     Dosage: UNK
     Dates: start: 20190711, end: 20200710
  9. MOTRIN [Concomitant]
     Active Substance: IBUPROFEN
     Indication: PRODUCT USED FOR UNKNOWN INDICATION
  10. ZOFRAN [Concomitant]
     Active Substance: ONDANSETRON HYDROCHLORIDE
     Indication: PRODUCT USED FOR UNKNOWN INDICATION
  11. KCL [Concomitant]
     Active Substance: POTASSIUM CHLORIDE
     Indication: PRODUCT USED FOR UNKNOWN INDICATION
     Dosage: 20 UNK
  12. ZYPREXA [Suspect]
     Active Substance: OLANZAPINE
     Indication: SCHIZOPHRENIA
     Dosage: 5 MG, TID
     Route: 048
     Dates: start: 20190130, end: 20201002
  13. OCALIVA [Suspect]
     Active Substance: OBETICHOLIC ACID
     Dosage: 10 MG, DAILY
     Route: 048
     Dates: start: 20200212
  14. ZYPREXA [Suspect]
     Active Substance: OLANZAPINE
     Dosage: 5 MG, BID
     Route: 048
     Dates: end: 20201002

REACTIONS (32)
  - Hyponatraemia [Unknown]
  - Blood calcium increased [Unknown]
  - Neutrophil count increased [Unknown]
  - Lymphocyte count decreased [Unknown]
  - Rales [Unknown]
  - Somnolence [Unknown]
  - Aspartate aminotransferase increased [Unknown]
  - Urine osmolarity decreased [Unknown]
  - Fatigue [Unknown]
  - Blood potassium decreased [Unknown]
  - Dry skin [Unknown]
  - Gait disturbance [Unknown]
  - White blood cells urine positive [Unknown]
  - Blood chloride decreased [Unknown]
  - Blood uric acid abnormal [Unknown]
  - Malaise [Unknown]
  - Oral pain [Unknown]
  - Syncope [Recovered/Resolved]
  - Blood urea decreased [Unknown]
  - Thought blocking [Unknown]
  - Dry mouth [Unknown]
  - Protein total abnormal [Unknown]
  - Asthenia [Unknown]
  - Hypophagia [Unknown]
  - Red blood cells urine positive [Unknown]
  - Blood alkaline phosphatase increased [Unknown]
  - Blood creatinine decreased [Unknown]
  - Inappropriate antidiuretic hormone secretion [Unknown]
  - Weight decreased [Not Recovered/Not Resolved]
  - Blood glucose increased [Unknown]
  - Blood albumin decreased [Unknown]
  - Skin warm [Unknown]
